FAERS Safety Report 25007906 (Version 1)
Quarter: 2025Q1

REPORT INFORMATION
  Report Type: Report from Study
  Country: US (occurrence: US)
  Receive Date: 20250225
  Receipt Date: 20250225
  Transmission Date: 20250409
  Serious: Yes (Other)
  Sender: ABBVIE
  Company Number: US-ABBVIE-6111481

PATIENT
  Age: 45 Year
  Sex: Female

DRUGS (1)
  1. SKYRIZI [Suspect]
     Active Substance: RISANKIZUMAB-RZAA
     Indication: Psoriasis
     Route: 058
     Dates: start: 20241015

REACTIONS (11)
  - Post procedural haemorrhage [Unknown]
  - Feeling hot [Unknown]
  - Umbilical hernia [Not Recovered/Not Resolved]
  - Cough [Unknown]
  - Scar [Unknown]
  - Flushing [Unknown]
  - Erythema [Not Recovered/Not Resolved]
  - Dry skin [Not Recovered/Not Resolved]
  - Lacrimation increased [Not Recovered/Not Resolved]
  - Pharyngeal erythema [Not Recovered/Not Resolved]
  - Laparoscopic surgery [Unknown]

NARRATIVE: CASE EVENT DATE: 20240101
